FAERS Safety Report 7248564-7 (Version None)
Quarter: 2011Q1

REPORT INFORMATION
  Report Type: 
  Country: None (occurrence: None)
  Receive Date: 20110128
  Receipt Date: 20101106
  Transmission Date: 20110831
  Serious: Yes (Other)
  Sender: FDA-Public Use
  Company Number: US-BAYER-201023632BCC

PATIENT
  Sex: Female
  Weight: 68.182 kg

DRUGS (1)
  1. ALKA-SELTZER [ACETYLSALICYLIC ACID,CITRIC ACID,SODIUM BICARBONATE] [Suspect]
     Indication: HEADACHE
     Dosage: 1 DF, ONCE
     Route: 048
     Dates: start: 20101106, end: 20101106

REACTIONS (3)
  - ODYNOPHAGIA [None]
  - VOMITING [None]
  - OROPHARYNGEAL DISCOMFORT [None]
